FAERS Safety Report 13642404 (Version 1)
Quarter: 2017Q2

REPORT INFORMATION
  Report Type: Spontaneous
  Country: GB (occurrence: GB)
  Receive Date: 20170612
  Receipt Date: 20170612
  Transmission Date: 20170830
  Serious: Yes (Life-Threatening, Other)
  Sender: FDA-Public Use
  Company Number: GB-GLAXOSMITHKLINE-GB2017GSK088969

PATIENT
  Age: 28 Year
  Sex: Female

DRUGS (5)
  1. HYDROCORTISONE. [Suspect]
     Active Substance: HYDROCORTISONE
     Indication: ANTIEMETIC SUPPORTIVE CARE
     Route: 042
  2. DEXTROSE. [Suspect]
     Active Substance: DEXTROSE
     Indication: RESUSCITATION
  3. RANITIDINE. [Suspect]
     Active Substance: RANITIDINE
     Indication: ANTIEMETIC SUPPORTIVE CARE
  4. BICARBONATE [Suspect]
     Active Substance: BICARBONATE ION
     Indication: RESUSCITATION
  5. OMEPRAZOLE. [Suspect]
     Active Substance: OMEPRAZOLE
     Indication: ANTIEMETIC SUPPORTIVE CARE

REACTIONS (7)
  - Metabolic acidosis [Recovering/Resolving]
  - Live birth [Unknown]
  - Exposure during pregnancy [Unknown]
  - Ketosis [Recovering/Resolving]
  - Ketoacidosis [Recovering/Resolving]
  - Condition aggravated [Recovering/Resolving]
  - Insulin resistance [Recovering/Resolving]
